FAERS Safety Report 8317620-4 (Version None)
Quarter: 2012Q2

REPORT INFORMATION
  Report Type: 
  Country: None (occurrence: None)
  Receive Date: 20120427
  Receipt Date: 20120420
  Transmission Date: 20120825
  Serious: Yes (Other)
  Sender: FDA-Public Use
  Company Number: PHHY2011BR31854

PATIENT
  Sex: Female
  Weight: 54 kg

DRUGS (8)
  1. METOPROLOL SUCCINATE [Concomitant]
     Indication: PALPITATIONS
     Dosage: 25 MG, ONE TABLET A DAY
     Route: 048
  2. DIOVAN HCT [Suspect]
     Dosage: 1 DF, (160/12.5 MG, ONE TABLET A DAY)
     Route: 048
  3. SUSTRATE [Concomitant]
     Indication: PALPITATIONS
     Dosage: 1 DF, BID
     Route: 048
  4. DIOVAN HCT [Suspect]
     Dosage: 1 DF, (80/12.5 MG, ONE TABLET A DAY)
     Route: 048
  5. GLIMEPIRIDE [Concomitant]
     Dosage: 1 MG, UNK
  6. SIMVASTATIN [Concomitant]
  7. DIOVAN HCT [Suspect]
     Indication: HYPERTENSION
     Dosage: 1 DF, (320/12.5 MG), ONE TABLET A DAY
     Route: 048
  8. CLOPIDOGREL [Concomitant]
     Dosage: 75 MG, UNK

REACTIONS (10)
  - DRUG INTOLERANCE [None]
  - BLOOD CHOLESTEROL ABNORMAL [None]
  - DIABETES MELLITUS [None]
  - SERUM FERRITIN ABNORMAL [None]
  - BLOOD GLUCOSE INCREASED [None]
  - CSF TEST ABNORMAL [None]
  - BLOOD PRESSURE FLUCTUATION [None]
  - MEMORY IMPAIRMENT [None]
  - MALAISE [None]
  - BLOOD IRON INCREASED [None]
